FAERS Safety Report 19236992 (Version 1)
Quarter: 2021Q2

REPORT INFORMATION
  Report Type: Spontaneous
  Country: JP (occurrence: JP)
  Receive Date: 20210510
  Receipt Date: 20210510
  Transmission Date: 20210717
  Serious: Yes (Other)
  Sender: FDA-Public Use
  Company Number: JP-TELIGENT, INC-20210400039

PATIENT

DRUGS (2)
  1. HYDROCORTISONE. [Suspect]
     Active Substance: HYDROCORTISONE
     Dosage: 20 UNK
  2. HYDROCORTISONE. [Suspect]
     Active Substance: HYDROCORTISONE
     Dosage: 30 MILLIGRAM, QD

REACTIONS (8)
  - Malaise [Unknown]
  - Basedow^s disease [Unknown]
  - Goitre [Unknown]
  - Inappropriate thyroid stimulating hormone secretion [Unknown]
  - Parathyroid gland enlargement [Unknown]
  - Hypothalamic pituitary adrenal axis suppression [Unknown]
  - Hypotension [Unknown]
  - Tachycardia [Unknown]
